FAERS Safety Report 4716128-2 (Version None)
Quarter: 2005Q3

REPORT INFORMATION
  Report Type: 
  Country: None (occurrence: None)
  Receive Date: 20050718
  Receipt Date: 20041130
  Transmission Date: 20060218
  Serious: Yes (Life-Threatening, Hospitalization, Disabling)
  Sender: FDA-Public Use
  Company Number: DE-MERCK-0412DEU00019

PATIENT
  Age: 64 Year
  Sex: Male
  Weight: 78 kg

DRUGS (29)
  1. VIOXX [Suspect]
     Indication: SPINAL DISORDER
     Route: 048
     Dates: start: 20010701, end: 20030901
  2. VIOXX [Suspect]
     Route: 048
     Dates: start: 20020601, end: 20021104
  3. VIOXX [Suspect]
     Route: 048
     Dates: start: 20030113, end: 20030825
  4. VIOXX [Suspect]
     Route: 048
     Dates: start: 20030826, end: 20031001
  5. VIOXX [Suspect]
     Route: 048
     Dates: start: 20021111, end: 20021111
  6. VIOXX [Suspect]
     Route: 048
     Dates: start: 20021203, end: 20030112
  7. VIOXX [Suspect]
     Route: 048
     Dates: start: 20031015, end: 20031024
  8. VIOXX [Suspect]
     Indication: ARTHROPATHY
     Route: 048
     Dates: start: 20010701, end: 20030901
  9. VIOXX [Suspect]
     Route: 048
     Dates: start: 20020601, end: 20021104
  10. VIOXX [Suspect]
     Route: 048
     Dates: start: 20030113, end: 20030825
  11. VIOXX [Suspect]
     Route: 048
     Dates: start: 20030826, end: 20031001
  12. VIOXX [Suspect]
     Route: 048
     Dates: start: 20021111, end: 20021111
  13. VIOXX [Suspect]
     Route: 048
     Dates: start: 20021203, end: 20030112
  14. VIOXX [Suspect]
     Route: 048
     Dates: start: 20031015, end: 20031024
  15. FENOTEROL HYDROBROMIDE AND IPRATROPIUM BROMIDE [Concomitant]
     Route: 065
  16. FORMOTEROL FUMARATE [Concomitant]
     Route: 065
  17. BISOPROLOL FUMARATE [Concomitant]
     Route: 065
  18. ENALAPRIL MALEATE [Concomitant]
     Route: 065
  19. ATORVASTATIN CALCIUM [Concomitant]
     Route: 065
  20. TAMSULOSIN HYDROCHLORIDE [Concomitant]
     Route: 065
  21. SPIRONOLACTONE [Concomitant]
     Route: 065
  22. BECLOMETHASONE DIPROPIONATE [Concomitant]
     Route: 065
  23. THEOPHYLLINE [Concomitant]
     Route: 048
  24. PREDNISOLONE [Concomitant]
     Route: 048
  25. CAPTOPRIL [Concomitant]
     Route: 048
  26. ASPIRIN [Concomitant]
     Route: 048
  27. ACETYLCYSTEINE [Concomitant]
     Route: 048
  28. CALCIUM (UNSPECIFIED) [Concomitant]
     Route: 048
  29. METHYLPREDNISOLONE [Concomitant]
     Indication: CHRONIC OBSTRUCTIVE PULMONARY DISEASE
     Route: 065
     Dates: start: 20031001, end: 20031023

REACTIONS (20)
  - ACUTE CORONARY SYNDROME [None]
  - AORTIC VALVE STENOSIS [None]
  - ARRHYTHMIA [None]
  - ARTHROPATHY [None]
  - ATRIAL FIBRILLATION [None]
  - CARDIAC DISORDER [None]
  - CARDIAC VALVE DISEASE [None]
  - CHRONIC OBSTRUCTIVE PULMONARY DISEASE [None]
  - CORONARY ARTERY DISEASE [None]
  - CORONARY ARTERY STENOSIS [None]
  - DYSPNOEA [None]
  - GASTROINTESTINAL HAEMORRHAGE [None]
  - HYPERTENSIVE CRISIS [None]
  - OSTEITIS [None]
  - OSTEOARTHRITIS [None]
  - PYREXIA [None]
  - RADICULAR SYNDROME [None]
  - RESPIRATORY DISORDER [None]
  - RESPIRATORY TRACT INFECTION [None]
  - VASCULAR PSEUDOANEURYSM [None]
